FAERS Safety Report 14139430 (Version 3)
Quarter: 2018Q1

REPORT INFORMATION
  Report Type: Spontaneous
  Country: JP (occurrence: JP)
  Receive Date: 20171028
  Receipt Date: 20180102
  Transmission Date: 20180508
  Serious: Yes (Other)
  Sender: FDA-Public Use
  Company Number: JP-UCBSA-2017007919

PATIENT
  Age: 36 Year
  Sex: Female
  Weight: 67 kg

DRUGS (13)
  1. CIMZIA [Suspect]
     Active Substance: CERTOLIZUMAB PEGOL
     Indication: RHEUMATOID ARTHRITIS
     Dosage: 200 MG, EV 2 WEEKS(QOW)
     Route: 058
     Dates: start: 20130415, end: 20170515
  2. MEDROL [Concomitant]
     Active Substance: METHYLPREDNISOLONE
     Dosage: 10 MG, ONCE DAILY (QD)
     Route: 048
     Dates: start: 20170321
  3. CIMZIA [Suspect]
     Active Substance: CERTOLIZUMAB PEGOL
     Dosage: 200 MG, EV 3 WEEKS
     Route: 058
     Dates: start: 20170516, end: 20170724
  4. PROSTIN E2 [Concomitant]
     Active Substance: DINOPROSTONE
     Indication: LABOUR INDUCTION
     Dosage: 0.5 MG, 6X/DAY
     Route: 048
     Dates: start: 20170807
  5. CIMZIA [Suspect]
     Active Substance: CERTOLIZUMAB PEGOL
     Dosage: 200 MG, EV 2 WEEKS(QOW)
     Route: 058
     Dates: start: 20170725
  6. CALONAL [Concomitant]
     Active Substance: ACETAMINOPHEN
     Indication: PRODUCT USED FOR UNKNOWN INDICATION
     Dosage: DAILY DOSE:400 MG
     Route: 048
     Dates: start: 20160621
  7. PROGRAF [Suspect]
     Active Substance: TACROLIMUS\TACROLIMUS ANHYDROUS
     Indication: RHEUMATOID ARTHRITIS
     Dosage: 1 MG, ONCE DAILY (QD)
     Route: 048
     Dates: start: 20130611
  8. MEDROL [Concomitant]
     Active Substance: METHYLPREDNISOLONE
     Dosage: 9 MG, ONCE DAILY (QD)
     Route: 048
     Dates: start: 20170221, end: 20170320
  9. ONEALFA [Concomitant]
     Active Substance: ALFACALCIDOL
     Indication: PRODUCT USED FOR UNKNOWN INDICATION
     Dosage: 0.5 ?G, ONCE DAILY (QD)
     Route: 048
     Dates: start: 20140513
  10. MEDROL [Concomitant]
     Active Substance: METHYLPREDNISOLONE
     Indication: PRODUCT USED FOR UNKNOWN INDICATION
     Dosage: 10 MG, ONCE DAILY (QD)
     Route: 048
     Dates: start: 20160104, end: 20170220
  11. FERROMIA [Concomitant]
     Active Substance: SODIUM FERROUS CITRATE
     Indication: PRODUCT USED FOR UNKNOWN INDICATION
     Dosage: 50 MG, ONCE DAILY (QD)
     Dates: start: 20150406, end: 20161205
  12. AZULFIDINE EN-TABS [Concomitant]
     Active Substance: SULFASALAZINE
     Indication: PRODUCT USED FOR UNKNOWN INDICATION
     Dosage: 500 MG, 2X/DAY (BID)
     Route: 048
     Dates: start: 20140218
  13. FOLIAMIN [Concomitant]
     Active Substance: FOLIC ACID
     Indication: PRODUCT USED FOR UNKNOWN INDICATION
     Dosage: 5 MG, ONCE DAILY (QD)
     Route: 048
     Dates: start: 20160621

REACTIONS (5)
  - Hypotension [Recovered/Resolved]
  - Pregnancy [Unknown]
  - Off label use [Unknown]
  - Abortion threatened [Recovered/Resolved]
  - Breast feeding [Unknown]

NARRATIVE: CASE EVENT DATE: 201611
